FAERS Safety Report 5053963-8 (Version None)
Quarter: 2006Q3

REPORT INFORMATION
  Report Type: 
  Country: None (occurrence: None)
  Receive Date: 20060712
  Receipt Date: 20060706
  Transmission Date: 20061208
  Serious: Yes (Hospitalization, Other)
  Sender: FDA-Public Use
  Company Number: FRWYE030406JUL06

PATIENT
  Age: 63 Year
  Sex: Male

DRUGS (11)
  1. ADVIL [Suspect]
     Indication: ERYSIPELAS
     Dosage: 1200 MG 1X PER 1 DAY ORAL
     Route: 048
     Dates: start: 20060512, end: 20060522
  2. IXPRIM (PARACETAMOL/TRAMADOL HYDROCHLORIDE, , 0) [Suspect]
     Indication: ERYSIPELAS
     Dosage: 25 MG 4X PER 1 DAY ORAL
     Route: 048
     Dates: start: 20060512, end: 20060522
  3. PYOSTACINE                 (PRISTINAMYCIN, , 0) [Suspect]
     Indication: ERYSIPELAS
     Dosage: 500 MG 4X PER 1 DAY ORAL
     Route: 048
     Dates: start: 20060512, end: 20060522
  4. FRAXODI (NADROPARIN CALCIUM) [Concomitant]
  5. AMARYL [Concomitant]
  6. KORETIC (HYDROCHLOROTHIAZIDE/QUINAPRIL HYDROCHLORIDE) [Concomitant]
  7. PHYSIOTENS (MOXONIDINE) [Concomitant]
  8. FENOFIBRATE [Concomitant]
  9. MAXEPA (CITRIC ACID/FATTY ACIDS NOS/GLUCOSE /INSULIN/INSULIN HUMAN INJ [Concomitant]
  10. PRAVASTATIN [Concomitant]
  11. ALLOPURINOL [Concomitant]

REACTIONS (1)
  - RENAL FAILURE ACUTE [None]
